FAERS Safety Report 5597928-6 (Version None)
Quarter: 2008Q1

REPORT INFORMATION
  Report Type: 
  Country: None (occurrence: None)
  Receive Date: 20080122
  Receipt Date: 20080114
  Transmission Date: 20080703
  Serious: Yes (Other)
  Sender: FDA-Public Use
  Company Number: BR-BAYER-BR-2007-017641

PATIENT
  Age: 35 Year
  Sex: Female
  Weight: 67 kg

DRUGS (1)
  1. YASMIN [Suspect]
     Indication: ORAL CONTRACEPTION
     Route: 048
     Dates: start: 20060710, end: 20070510

REACTIONS (8)
  - GESTATIONAL DIABETES [None]
  - HEADACHE [None]
  - PAIN IN EXTREMITY [None]
  - PREGNANCY INDUCED HYPERTENSION [None]
  - PREGNANCY ON ORAL CONTRACEPTIVE [None]
  - PREMATURE RUPTURE OF MEMBRANES [None]
  - TELANGIECTASIA [None]
  - WEIGHT INCREASED [None]
